FAERS Safety Report 10562673 (Version 5)
Quarter: 2015Q2

REPORT INFORMATION
  Report Type: Spontaneous
  Country: BE (occurrence: BE)
  Receive Date: 20141104
  Receipt Date: 20150410
  Transmission Date: 20150821
  Serious: Yes (Life-Threatening, Hospitalization)
  Sender: FDA-Public Use
  Company Number: BE-BEH-2014046028

PATIENT
  Age: 49 Year
  Sex: Male
  Weight: 98 kg

DRUGS (5)
  1. PRIVIGEN [Suspect]
     Active Substance: HUMAN IMMUNOGLOBULIN G
     Dosage: 2 G/KG; 3 INFUSIONS DURING 3 DAYS
     Route: 042
     Dates: start: 20140910, end: 20140912
  2. SULFATE QUININE [Concomitant]
     Indication: MUSCLE SPASMS
     Dosage: 200 MG - 100 MG; START DATE ??-???-2013
  3. TRAZODONE [Concomitant]
     Active Substance: TRAZODONE HYDROCHLORIDE
     Indication: INSOMNIA
     Dosage: START DATE ??-???-2013
  4. PRIVIGEN [Suspect]
     Active Substance: HUMAN IMMUNOGLOBULIN G
     Indication: NEUROPATHY PERIPHERAL
     Dosage: THERAPY START DATE
     Dates: start: 20140723
  5. BROMAZEPAM [Concomitant]
     Active Substance: BROMAZEPAM
     Indication: INSOMNIA
     Dosage: START DATE ??-???-1993

REACTIONS (4)
  - Drug ineffective for unapproved indication [Unknown]
  - Pulmonary embolism [Unknown]
  - Deep vein thrombosis [Unknown]
  - Cardiac arrest [Unknown]

NARRATIVE: CASE EVENT DATE: 20141019
